FAERS Safety Report 10677778 (Version 1)
Quarter: 2014Q4

REPORT INFORMATION
  Report Type: Other
  Country: DE (occurrence: DE)
  Receive Date: 20141229
  Receipt Date: 20141229
  Transmission Date: 20150529
  Serious: Yes (Other)
  Sender: FDA-Public Use
  Company Number: DE-LUPIN PHARMACEUTICALS INC.-E2B_00002948

PATIENT
  Age: 1 Day
  Sex: Male
  Weight: 1.95 kg

DRUGS (7)
  1. GABAPENTIN. [Suspect]
     Active Substance: GABAPENTIN
     Indication: RESTLESS LEGS SYNDROME
     Dosage: 300MG
     Route: 064
     Dates: start: 20131006
  2. DIPHENHYDRAMINE [Suspect]
     Active Substance: DIPHENHYDRAMINE
     Indication: ANXIETY DISORDER
     Route: 064
     Dates: start: 20131006, end: 20140629
  3. GABAPENTIN. [Suspect]
     Active Substance: GABAPENTIN
     Dosage: 400MG
     Route: 064
     Dates: end: 20140629
  4. GABAPENTIN. [Suspect]
     Active Substance: GABAPENTIN
     Dosage: 350MG UNTILL WEEK 35+3
     Route: 064
  5. SERTRALINE [Suspect]
     Active Substance: SERTRALINE HYDROCHLORIDE
     Indication: DEPRESSION
     Route: 064
     Dates: start: 20131006, end: 20140629
  6. FOLSAURE [Concomitant]
     Active Substance: FOLIC ACID
     Indication: PROPHYLAXIS OF NEURAL TUBE DEFECT
     Route: 064
  7. CEFUROXIM [Concomitant]
     Active Substance: CEFUROXIME
     Indication: INFECTION PROPHYLAXIS
     Route: 064

REACTIONS (6)
  - Temperature regulation disorder [Recovered/Resolved]
  - Microcephaly [Unknown]
  - Small for dates baby [Unknown]
  - Respiratory disorder neonatal [Recovered/Resolved]
  - Feeding disorder neonatal [Recovered/Resolved]
  - Foetal exposure during pregnancy [Unknown]

NARRATIVE: CASE EVENT DATE: 20120930
